FAERS Safety Report 17756776 (Version 1)
Quarter: 2020Q2

REPORT INFORMATION
  Report Type: Spontaneous
  Country: US (occurrence: US)
  Receive Date: 20200507
  Receipt Date: 20200507
  Transmission Date: 20200714
  Serious: Yes (Life-Threatening, Hospitalization)
  Sender: FDA-Public Use
  Company Number: None

PATIENT
  Age: 64 Year

DRUGS (1)
  1. WARFARIN [Suspect]
     Active Substance: WARFARIN

REACTIONS (5)
  - Shock [None]
  - Faeces discoloured [None]
  - Melaena [None]
  - Haematemesis [None]
  - International normalised ratio decreased [None]

NARRATIVE: CASE EVENT DATE: 20200504
